FAERS Safety Report 4479045-1 (Version None)
Quarter: 2004Q4

REPORT INFORMATION
  Report Type: 
  Country: None (occurrence: None)
  Receive Date: 20040923
  Receipt Date: 20040630
  Transmission Date: 20050328
  Serious: No
  Sender: FDA-Public Use
  Company Number: 207594

PATIENT
  Sex: Female

DRUGS (3)
  1. AVASTIN [Suspect]
     Indication: COLORECTAL CANCER METASTATIC
     Dosage: 5 MG/KG, Q2W, INTRAVENOUS
     Route: 042
     Dates: start: 20040101, end: 20040101
  2. FLUOROURACIL [Concomitant]
  3. LEUCOVORIN (LEUCOVORIN CALCIUM) [Concomitant]

REACTIONS (1)
  - DRUG INEFFECTIVE [None]
